FAERS Safety Report 7905776-4 (Version None)
Quarter: 2011Q4

REPORT INFORMATION
  Report Type: 
  Country: None (occurrence: None)
  Receive Date: 20111108
  Receipt Date: 20111024
  Transmission Date: 20120403
  Serious: Yes (Other)
  Sender: FDA-Public Use
  Company Number: LTI2011A00242

PATIENT
  Age: 68 Year
  Sex: Male

DRUGS (1)
  1. PIOGLITAZONE HYDROCHLORIDE AND METFORMIN HYDROCHLORIDE [Suspect]
     Indication: TYPE 2 DIABETES MELLITUS
     Dosage: 2 DF (1 DF, 2 IN 1 D), ORAL
     Route: 048
     Dates: start: 20080909, end: 20100519

REACTIONS (1)
  - BLADDER TRANSITIONAL CELL CARCINOMA [None]
